FAERS Safety Report 26025191 (Version 1)
Quarter: 2025Q4

REPORT INFORMATION
  Report Type: Spontaneous
  Country: RU (occurrence: RU)
  Receive Date: 20251111
  Receipt Date: 20251111
  Transmission Date: 20260118
  Serious: Yes (Other)
  Sender: ROCHE
  Company Number: RU-ROCHE-10000427660

PATIENT
  Age: 62 Year
  Sex: Female

DRUGS (5)
  1. TRASTUZUMAB [Suspect]
     Active Substance: TRASTUZUMAB
     Indication: Breast cancer metastatic
     Dosage: LOADING DOSE 8 MG/KG,  6 CYCLES
     Route: 065
     Dates: start: 20230418, end: 202308
  2. TRASTUZUMAB [Suspect]
     Active Substance: TRASTUZUMAB
     Route: 065
     Dates: start: 202308, end: 202402
  3. PERTUZUMAB [Suspect]
     Active Substance: PERTUZUMAB
     Indication: Breast cancer metastatic
     Dosage: LOADING DOSE 840 MG,  6 CYCLES
     Route: 065
     Dates: start: 20230418, end: 202308
  4. PERTUZUMAB [Suspect]
     Active Substance: PERTUZUMAB
     Route: 065
     Dates: start: 202308, end: 202402
  5. DOCETAXEL [Suspect]
     Active Substance: DOCETAXEL
     Indication: Breast cancer metastatic
     Dosage: 6 CYCLES
     Route: 065
     Dates: start: 20230418, end: 202308

REACTIONS (5)
  - Hepatic steatosis [Unknown]
  - Pancreatic disorder [Unknown]
  - Tumour invasion [Unknown]
  - Disease progression [Recovering/Resolving]
  - Retracted nipple [Unknown]
